FAERS Safety Report 5108112-4 (Version None)
Quarter: 2006Q3

REPORT INFORMATION
  Report Type: 
  Country: None (occurrence: None)
  Receive Date: 20060919
  Receipt Date: 20060914
  Transmission Date: 20061208
  Serious: Yes (Hospitalization)
  Sender: FDA-Public Use
  Company Number: US-GLAXOSMITHKLINE-A0620204A

PATIENT
  Age: 36 Year
  Sex: Male

DRUGS (1)
  1. PAROXETINE HCL [Suspect]
     Indication: PANIC DISORDER
     Route: 048
     Dates: start: 20050101

REACTIONS (5)
  - ADVERSE EVENT [None]
  - AGITATION [None]
  - FEELING ABNORMAL [None]
  - PANIC DISORDER [None]
  - SEROTONIN SYNDROME [None]
